FAERS Safety Report 13832423 (Version 1)
Quarter: 2017Q3

REPORT INFORMATION
  Report Type: Spontaneous
  Country: US (occurrence: US)
  Receive Date: 20170803
  Receipt Date: 20170803
  Transmission Date: 20171127
  Serious: No
  Sender: FDA-Public Use
  Company Number: US-ROCHE-1538822

PATIENT
  Age: 63 Year
  Sex: Female

DRUGS (5)
  1. BONIVA [Suspect]
     Active Substance: IBANDRONATE SODIUM
     Indication: HYPERSENSITIVITY
     Route: 065
  2. CELEBREX [Suspect]
     Active Substance: CELECOXIB
     Indication: BACK PAIN
     Route: 048
     Dates: start: 20140922
  3. ZOLOFT [Concomitant]
     Active Substance: SERTRALINE HYDROCHLORIDE
     Indication: DEPRESSION
     Route: 065
     Dates: start: 20140922
  4. CELEBREX [Suspect]
     Active Substance: CELECOXIB
     Indication: COSTOCHONDRITIS
  5. ATORVASTATIN [Concomitant]
     Active Substance: ATORVASTATIN
     Indication: HYPERLIPIDAEMIA
     Route: 065
     Dates: start: 20140922

REACTIONS (3)
  - Dizziness [Recovering/Resolving]
  - Vomiting [Recovered/Resolved]
  - Labyrinthitis [Recovering/Resolving]

NARRATIVE: CASE EVENT DATE: 20141014
